APPROVED DRUG PRODUCT: BETAXOLOL HYDROCHLORIDE
Active Ingredient: BETAXOLOL HYDROCHLORIDE
Strength: EQ 0.5% BASE
Dosage Form/Route: SOLUTION/DROPS;OPHTHALMIC
Application: A078694 | Product #001 | TE Code: AT
Applicant: CHARTWELL RX SCIENCES LLC
Approved: Nov 16, 2009 | RLD: No | RS: No | Type: RX